FAERS Safety Report 10475822 (Version 1)
Quarter: 2014Q3

REPORT INFORMATION
  Report Type: Spontaneous
  Country: US (occurrence: US)
  Receive Date: 20140925
  Receipt Date: 20140925
  Transmission Date: 20150326
  Serious: No
  Sender: FDA-Public Use
  Company Number: US-GLAXOSMITHKLINE-A1071621A

PATIENT
  Age: 65 Year
  Sex: Female
  Weight: 90.5 kg

DRUGS (18)
  1. KETOROLAC TROMETHAMINE. [Suspect]
     Active Substance: KETOROLAC TROMETHAMINE
     Route: 065
  2. EPIPEN [Concomitant]
     Active Substance: EPINEPHRINE
  3. MINOXIDIL. [Concomitant]
     Active Substance: MINOXIDIL
  4. NITROGLYCERIN. [Concomitant]
     Active Substance: NITROGLYCERIN
  5. CYMBALTA [Concomitant]
     Active Substance: DULOXETINE HYDROCHLORIDE
  6. LIPITOR [Concomitant]
     Active Substance: ATORVASTATIN CALCIUM
  7. PHENERGAN [Concomitant]
     Active Substance: PROMETHAZINE HYDROCHLORIDE
  8. INFLUENZA VACCINE UNSPECIFIED 2011-12 SEASON [Suspect]
     Active Substance: INFLUENZA VIRUS VACCINE
     Indication: PROPHYLAXIS
     Route: 065
  9. COREG CR [Suspect]
     Active Substance: CARVEDILOL PHOSPHATE
     Indication: HYPERTENSION
     Dosage: 80MG TWICE PER DAY
     Route: 048
  10. POTASSIUM [Concomitant]
     Active Substance: POTASSIUM
  11. WARFARIN [Concomitant]
     Active Substance: WARFARIN
  12. CARVEDILOL. [Suspect]
     Active Substance: CARVEDILOL
     Indication: HYPERTENSION
     Route: 065
  13. FUROSEMIDE. [Concomitant]
     Active Substance: FUROSEMIDE
  14. NITROSTAT [Concomitant]
     Active Substance: NITROGLYCERIN
  15. ZANAFLEX [Concomitant]
     Active Substance: TIZANIDINE HYDROCHLORIDE
  16. NEXIUM [Concomitant]
     Active Substance: ESOMEPRAZOLE MAGNESIUM
  17. CLONIDINE. [Concomitant]
     Active Substance: CLONIDINE
  18. MS CONTIN [Concomitant]
     Active Substance: MORPHINE SULFATE

REACTIONS (10)
  - Blood pressure increased [Unknown]
  - Headache [Unknown]
  - Concussion [Unknown]
  - Bradycardia [Unknown]
  - Rash [Unknown]
  - Drug ineffective [Unknown]
  - Arrhythmia [Unknown]
  - Oropharyngeal pain [Unknown]
  - Fall [Unknown]
  - Dyspnoea [Unknown]
